FAERS Safety Report 5474541-2 (Version None)
Quarter: 2007Q4

REPORT INFORMATION
  Report Type: 
  Country: None (occurrence: None)
  Receive Date: 20071002
  Receipt Date: 20070919
  Transmission Date: 20080405
  Serious: Yes (Other)
  Sender: FDA-Public Use
  Company Number: AUWYE340320SEP07

PATIENT
  Sex: Male

DRUGS (6)
  1. EFFEXOR XR [Suspect]
     Indication: DEPRESSION
     Route: 048
     Dates: start: 20050901, end: 20070901
  2. EFFEXOR XR [Suspect]
     Indication: ANXIETY
     Route: 048
     Dates: start: 20070901, end: 20070901
  3. EFFEXOR XR [Suspect]
     Route: 048
     Dates: start: 20070901, end: 20070918
  4. EFFEXOR XR [Suspect]
     Route: 048
     Dates: start: 20070919
  5. LIPITOR [Concomitant]
  6. VALIUM [Concomitant]

REACTIONS (6)
  - BLOOD PRESSURE INCREASED [None]
  - DIZZINESS [None]
  - DRUG WITHDRAWAL SYNDROME [None]
  - HEADACHE [None]
  - NAUSEA [None]
  - VOMITING [None]
